FAERS Safety Report 9936836 (Version 1)
Quarter: 2014Q1

REPORT INFORMATION
  Report Type: Spontaneous
  Country: US (occurrence: None)
  Receive Date: 20140110
  Receipt Date: 20140110
  Transmission Date: 20141002
  Serious: Yes (Other)
  Sender: FDA-Public Use
  Company Number: E2B_00001364

PATIENT
  Age: 18 Year
  Sex: Male
  Weight: 63.5 kg

DRUGS (1)
  1. LEVETIRACETAM [Suspect]
     Indication: CONVULSION
     Dosage: 800 MG (400 MG, 2 IN 1 D), PER ORAL
     Route: 048
     Dates: start: 20131004, end: 20131007

REACTIONS (1)
  - Convulsion [None]
